FAERS Safety Report 19727888 (Version 1)
Quarter: 2021Q3

REPORT INFORMATION
  Report Type: Spontaneous
  Country: US (occurrence: US)
  Receive Date: 20210820
  Receipt Date: 20210820
  Transmission Date: 20211014
  Serious: No
  Sender: FDA-Public Use
  Company Number: None

PATIENT
  Age: 20 Year
  Sex: Female
  Weight: 67.5 kg

DRUGS (3)
  1. LEVOTHYROXINE. [Concomitant]
     Active Substance: LEVOTHYROXINE
  2. WALMART MAXIMUM STRENGTH URINARY PAIN RELIEF [Suspect]
     Active Substance: PHENAZOPYRIDINE HYDROCHLORIDE
     Indication: URINARY TRACT PAIN
     Dosage: ?          QUANTITY:2 TABLET(S);?
     Route: 048
     Dates: start: 20210810, end: 20210820
  3. SERTRALINE [Concomitant]
     Active Substance: SERTRALINE HYDROCHLORIDE

REACTIONS (3)
  - Renal pain [None]
  - Dyspnoea [None]
  - Cough [None]

NARRATIVE: CASE EVENT DATE: 20210820
